FAERS Safety Report 17264969 (Version 1)
Quarter: 2020Q1

REPORT INFORMATION
  Report Type: Report from Study
  Country: US (occurrence: US)
  Receive Date: 20200113
  Receipt Date: 20200113
  Transmission Date: 20200409
  Serious: Yes (Hospitalization)
  Sender: FDA-Public Use
  Company Number: US-ACTELION-A-NJ2019-192785

PATIENT
  Sex: Female

DRUGS (8)
  1. TYVASO [Concomitant]
     Active Substance: TREPROSTINIL
  2. ALENDRONATE SODIUM. [Concomitant]
     Active Substance: ALENDRONATE SODIUM
  3. PREDNISONE. [Concomitant]
     Active Substance: PREDNISONE
  4. DILTIAZEM HCL [Concomitant]
     Active Substance: DILTIAZEM HYDROCHLORIDE
  5. AMOXICILLIN. [Concomitant]
     Active Substance: AMOXICILLIN
  6. ESTRADIOL. [Concomitant]
     Active Substance: ESTRADIOL
  7. OPSUMIT [Suspect]
     Active Substance: MACITENTAN
     Indication: CHRONIC OBSTRUCTIVE PULMONARY DISEASE
     Dosage: 10 MG
     Route: 048
  8. OPSUMIT [Suspect]
     Active Substance: MACITENTAN
     Indication: PULMONARY ARTERIAL HYPERTENSION

REACTIONS (4)
  - Hospitalisation [Recovered/Resolved]
  - Product dose omission [Recovered/Resolved]
  - Respiratory distress [Unknown]
  - Skin atrophy [Unknown]
